FAERS Safety Report 7910564-9 (Version None)
Quarter: 2011Q4

REPORT INFORMATION
  Report Type: 
  Country: None (occurrence: None)
  Receive Date: 20111111
  Receipt Date: 20111107
  Transmission Date: 20120403
  Serious: Yes (Death, Other)
  Sender: FDA-Public Use
  Company Number: PHHY2011CO098524

PATIENT
  Sex: Female

DRUGS (6)
  1. HYOSCINE BUTYLBROMIDE [Concomitant]
  2. SANDOSTATIN [Suspect]
     Indication: NEUROENDOCRINE TUMOUR
     Dosage: 0.1 MG, UNK
     Route: 058
     Dates: start: 20111015, end: 20111020
  3. METOCLOPRAMIDE HYDROCHLORIDE [Concomitant]
  4. SANDOSTATIN LAR [Suspect]
     Indication: NEUROENDOCRINE TUMOUR
     Dosage: UNK UKN, UNK
     Route: 030
  5. CORTICOSTEROIDS [Concomitant]
  6. MORPHINE [Concomitant]

REACTIONS (9)
  - DEATH [None]
  - METASTASES TO LUNG [None]
  - DECREASED APPETITE [None]
  - METASTASES TO PANCREAS [None]
  - COUGH [None]
  - BLOOD GLUCOSE ABNORMAL [None]
  - PALLOR [None]
  - OEDEMA PERIPHERAL [None]
  - DYSPNOEA [None]
